FAERS Safety Report 6977120-0 (Version None)
Quarter: 2010Q3

REPORT INFORMATION
  Report Type: 
  Country: None (occurrence: None)
  Receive Date: 20100910
  Receipt Date: 20100901
  Transmission Date: 20110219
  Serious: Yes (Other)
  Sender: FDA-Public Use
  Company Number: FR-WYE-G06609310

PATIENT
  Sex: Female

DRUGS (9)
  1. EFFEXOR XR [Suspect]
     Dosage: 375 MG TOTAL DAILY
     Route: 048
     Dates: start: 20100723, end: 20100813
  2. EFFEXOR XR [Suspect]
     Dosage: 225 MG TOTAL DAILY
     Route: 048
     Dates: start: 20100818
  3. ATARAX [Suspect]
     Dosage: 300 MG TOTAL DAILY
     Route: 048
     Dates: start: 20100723, end: 20100813
  4. VALIUM [Concomitant]
     Dates: start: 20100723
  5. LEXOMIL [Concomitant]
     Dosage: THREE QUARTERS OF A TABLET TOTAL DAILY
     Route: 048
  6. IMOVANE [Concomitant]
     Dosage: 1 TO 2 TABLETS PER DAY BEFORE GOING TO BED
     Route: 048
  7. MIRTAZAPINE [Suspect]
     Dosage: 2 TABLETS TOTAL DAILY
     Route: 048
     Dates: start: 20100723, end: 20100813
  8. MIRTAZAPINE [Suspect]
     Dosage: 2 TABLETS TOTAL DAILY
     Route: 048
     Dates: start: 20100818
  9. SERTRALINE HYDROCHLORIDE [Concomitant]
     Route: 048

REACTIONS (2)
  - APRAXIA [None]
  - DYSARTHRIA [None]
